FAERS Safety Report 5421862-5 (Version None)
Quarter: 2007Q3

REPORT INFORMATION
  Report Type: 
  Country: None (occurrence: None)
  Receive Date: 20070817
  Receipt Date: 20070807
  Transmission Date: 20080115
  Serious: Yes (Hospitalization)
  Sender: FDA-Public Use
  Company Number: 2007-02269

PATIENT
  Age: 75 Year
  Sex: Male
  Weight: 66 kg

DRUGS (3)
  1. VELCADE [Suspect]
     Indication: MULTIPLE MYELOMA
     Dosage: 2.30 MG, INTRAVENOUS
     Route: 042
     Dates: start: 20070327, end: 20070327
  2. GRANISETRON  HCL [Concomitant]
  3. DEXAMETHASONE 0.5MG TAB [Concomitant]

REACTIONS (16)
  - CONFUSIONAL STATE [None]
  - DIARRHOEA [None]
  - ENTEROCOCCAL SEPSIS [None]
  - GASTRITIS HAEMORRHAGIC [None]
  - GASTRODUODENAL ULCER [None]
  - GENERAL PHYSICAL HEALTH DETERIORATION [None]
  - HAEMOGLOBIN DECREASED [None]
  - MELAENA [None]
  - OEDEMA PERIPHERAL [None]
  - RENAL FAILURE [None]
  - SEPSIS [None]
  - SOMNOLENCE [None]
  - STAPHYLOCOCCAL INFECTION [None]
  - TACHYCARDIA [None]
  - TACHYPNOEA [None]
  - UPPER GASTROINTESTINAL HAEMORRHAGE [None]
